FAERS Safety Report 5341791-5 (Version None)
Quarter: 2007Q2

REPORT INFORMATION
  Report Type: 
  Country: None (occurrence: None)
  Receive Date: 20070601
  Receipt Date: 20070509
  Transmission Date: 20071010
  Serious: Yes (Other)
  Sender: FDA-Public Use
  Company Number: JP-PFIZER INC-2007040418

PATIENT
  Age: 8 Month
  Sex: Male

DRUGS (1)
  1. SOLU-MEDROL [Suspect]
     Indication: ASTHMA

REACTIONS (2)
  - INFECTION [None]
  - WHITE BLOOD CELL COUNT INCREASED [None]
